FAERS Safety Report 8282111 (Version 2)
Quarter: 2016Q1

REPORT INFORMATION
  Report Type: Spontaneous
  Country: FR (occurrence: FR)
  Receive Date: 20111209
  Receipt Date: 20160127
  Transmission Date: 20160526
  Serious: Yes (Other)
  Sender: FDA-Public Use
  Company Number: FR-BRISTOL-MYERS SQUIBB COMPANY-16277527

PATIENT
  Sex: Female

DRUGS (7)
  1. CO-EFFERALGAN [Suspect]
     Active Substance: ACETAMINOPHEN\CODEINE PHOSPHATE
     Indication: PARONYCHIA
     Dosage: UNK
     Route: 065
     Dates: start: 20081210, end: 20081231
  2. FUNGIZONE [Suspect]
     Active Substance: AMPHOTERICIN B
     Indication: PARONYCHIA
     Dosage: UNK
     Route: 065
     Dates: start: 20081222
  3. BI-PROFENID [Suspect]
     Active Substance: KETOPROFEN
     Indication: PARONYCHIA
     Dosage: UNK
     Route: 065
     Dates: start: 20081210, end: 20081231
  4. KLIPAL [Suspect]
     Active Substance: ACETAMINOPHEN\CODEINE PHOSPHATE
     Indication: PARONYCHIA
     Dosage: 500 MG, UNK
     Route: 065
     Dates: start: 20081210, end: 20081231
  5. PROPOFAN [Suspect]
     Active Substance: ACETAMINOPHEN\CAFFEINE\PROPOXYPHENE
     Indication: PARONYCHIA
     Dosage: UNK
     Route: 065
     Dates: start: 20081210, end: 20081231
  6. MONURIL [Suspect]
     Active Substance: FOSFOMYCIN SODIUM
     Indication: URINARY TRACT INFECTION
     Dosage: 3 G, QD
     Route: 065
     Dates: start: 20081221
  7. PYOSTACINE [Suspect]
     Active Substance: PRISTINAMYCIN
     Indication: PARONYCHIA
     Dosage: UNK
     Route: 065
     Dates: start: 20081201, end: 20081210

REACTIONS (2)
  - Abortion induced [Unknown]
  - Maternal exposure during pregnancy [Recovered/Resolved]

NARRATIVE: CASE EVENT DATE: 200902
